FAERS Safety Report 24940494 (Version 1)
Quarter: 2025Q1

REPORT INFORMATION
  Report Type: Spontaneous
  Country: US (occurrence: US)
  Receive Date: 20250207
  Receipt Date: 20250207
  Transmission Date: 20250409
  Serious: No
  Sender: KYOWA
  Company Number: US-KYOWAKIRIN-2025KK001966

PATIENT

DRUGS (2)
  1. POTELIGEO [Suspect]
     Active Substance: MOGAMULIZUMAB-KPKC
     Indication: Cutaneous T-cell lymphoma
     Dosage: 1MG/KG,1X/2 WEEKS (EVERY OTHER WEEK)
     Route: 042
     Dates: start: 20220325
  2. POTELIGEO [Suspect]
     Active Substance: MOGAMULIZUMAB-KPKC
     Dosage: 1MG/KG, 1X/2 WEEKS (EVERY OTHER WEEK)
     Route: 042
     Dates: start: 20241127

REACTIONS (1)
  - Product dose omission issue [Unknown]
